FAERS Safety Report 24799757 (Version 1)
Quarter: 2024Q4

REPORT INFORMATION
  Report Type: Spontaneous
  Country: US (occurrence: None)
  Receive Date: 20241231
  Receipt Date: 20241231
  Transmission Date: 20250115
  Serious: Yes (Hospitalization)
  Sender: Public
  Company Number: None

PATIENT
  Age: 80 Year
  Sex: Female
  Weight: 77.4 kg

DRUGS (1)
  1. YESCARTA [Suspect]
     Active Substance: AXICABTAGENE CILOLEUCEL
     Indication: Diffuse large B-cell lymphoma
     Dosage: 1 TOT - TOTAL ONCE INTRAVENOUS
     Route: 042
     Dates: start: 20240917, end: 20240917

REACTIONS (1)
  - Neurotoxicity [None]

NARRATIVE: CASE EVENT DATE: 20240919
